FAERS Safety Report 5071364-3 (Version None)
Quarter: 2006Q3

REPORT INFORMATION
  Report Type: 
  Country: None (occurrence: None)
  Receive Date: 20060804
  Receipt Date: 20060208
  Transmission Date: 20061208
  Serious: No
  Sender: FDA-Public Use
  Company Number: US-AMGEN-US168050

PATIENT
  Sex: Female
  Weight: 56.8 kg

DRUGS (14)
  1. ARANESP [Suspect]
     Indication: ANAEMIA
     Route: 058
     Dates: start: 20050830
  2. PREDNISONE TAB [Suspect]
     Route: 065
  3. CELLCEPT [Concomitant]
     Route: 065
     Dates: start: 19980101
  4. CELEXA [Concomitant]
     Route: 065
  5. PROGRAF [Concomitant]
     Route: 065
  6. BUSPAR [Concomitant]
     Route: 065
  7. PRAVACHOL [Concomitant]
     Route: 065
  8. ASPIRIN [Concomitant]
     Route: 065
  9. ESTROGEN NOS [Concomitant]
     Route: 065
  10. MULTIVITAMIN [Concomitant]
     Route: 065
  11. ZANAFLEX [Concomitant]
     Route: 065
  12. SINEQUAN [Concomitant]
     Route: 065
  13. LABETALOL HCL [Concomitant]
     Route: 065
  14. METHADONE HCL [Concomitant]
     Route: 065

REACTIONS (1)
  - THERAPEUTIC RESPONSE DECREASED [None]
